FAERS Safety Report 9865351 (Version 1)
Quarter: 2014Q1

REPORT INFORMATION
  Report Type: Spontaneous
  Country: US (occurrence: US)
  Receive Date: 20140203
  Receipt Date: 20140203
  Transmission Date: 20141002
  Serious: No
  Sender: FDA-Public Use
  Company Number: US-ALLERGAN-1301707US

PATIENT
  Age: 78 Year
  Sex: Female

DRUGS (6)
  1. RESTASIS [Suspect]
     Indication: DRY EYE
     Dosage: 2 GTT, UNK
     Route: 047
     Dates: start: 20130123
  2. LUMIGAN [Concomitant]
     Indication: GLAUCOMA
     Dosage: 2 GTT, QHS
     Route: 047
  3. ALPHAGAN [Concomitant]
     Indication: GLAUCOMA
     Dosage: 2 GTT, BID
     Route: 047
  4. TRUSOPT [Concomitant]
     Indication: GLAUCOMA
     Dosage: 2 GTT, BID
     Route: 047
  5. INSULIN [Concomitant]
     Indication: DIABETES MELLITUS
     Dosage: UNK UNK, QD
     Route: 058
  6. ADVAIR [Concomitant]
     Indication: BRONCHITIS CHRONIC
     Dosage: UNK UNK, BID
     Route: 048

REACTIONS (3)
  - Eye irritation [Recovered/Resolved]
  - Scleral hyperaemia [Recovered/Resolved]
  - Lacrimation increased [Recovered/Resolved]
